FAERS Safety Report 11343926 (Version 1)
Quarter: 2015Q3

REPORT INFORMATION
  Report Type: Spontaneous
  Country: US (occurrence: US)
  Receive Date: 20150806
  Receipt Date: 20150806
  Transmission Date: 20151125
  Serious: Yes (Other)
  Sender: FDA-Public Use
  Company Number: US-PFIZER INC-2015253270

PATIENT
  Age: 78 Year
  Sex: Female
  Weight: 95.69 kg

DRUGS (1)
  1. IBRANCE [Suspect]
     Active Substance: PALBOCICLIB
     Indication: BREAST CANCER
     Dosage: 125 MG, UNK, (DAY 1-21 Q 28 DAYS)
     Route: 048
     Dates: start: 20150703

REACTIONS (3)
  - Anaemia [Unknown]
  - Asthenia [Unknown]
  - Fatigue [Unknown]
